FAERS Safety Report 6877442-8 (Version None)
Quarter: 2010Q3

REPORT INFORMATION
  Report Type: 
  Country: None (occurrence: None)
  Receive Date: 20100727
  Receipt Date: 20100218
  Transmission Date: 20110219
  Serious: No
  Sender: FDA-Public Use
  Company Number: US-ABBOTT-10P-163-0628307-00

PATIENT
  Sex: Female
  Weight: 53.118 kg

DRUGS (6)
  1. SYNTHROID [Suspect]
     Indication: THYROIDECTOMY
     Dates: start: 19650101
  2. SYNTHROID [Suspect]
     Dates: start: 20080318
  3. ACTONEL [Concomitant]
     Indication: OSTEOPOROSIS
  4. DIOVAN [Concomitant]
     Indication: HYPERTENSION
  5. PRAVASTATIN [Concomitant]
     Indication: PRODUCT USED FOR UNKNOWN INDICATION
  6. PLAVIX [Concomitant]
     Indication: CORONARY ARTERIAL STENT INSERTION

REACTIONS (1)
  - NAUSEA [None]
